FAERS Safety Report 11773520 (Version 4)
Quarter: 2015Q4

REPORT INFORMATION
  Report Type: Spontaneous
  Country: TR (occurrence: TR)
  Receive Date: 20151124
  Receipt Date: 20151224
  Transmission Date: 20160304
  Serious: Yes (Hospitalization, Other)
  Sender: FDA-Public Use
  Company Number: TR-SA-2015SA186200

PATIENT
  Age: 28 Year
  Sex: Female
  Weight: 60 kg

DRUGS (1)
  1. AUBAGIO [Suspect]
     Active Substance: TERIFLUNOMIDE
     Indication: RELAPSING-REMITTING MULTIPLE SCLEROSIS
     Route: 048
     Dates: start: 200902, end: 20150824

REACTIONS (9)
  - Nausea [Recovering/Resolving]
  - Pancreatitis [Recovering/Resolving]
  - Helicobacter infection [Not Recovered/Not Resolved]
  - Abdominal pain upper [Recovering/Resolving]
  - Malaise [Unknown]
  - Weight decreased [Unknown]
  - Polyneuropathy [Not Recovered/Not Resolved]
  - Gallbladder polyp [Unknown]
  - Vomiting [Recovering/Resolving]

NARRATIVE: CASE EVENT DATE: 20150720
